FAERS Safety Report 8282783-6 (Version None)
Quarter: 2012Q2

REPORT INFORMATION
  Report Type: 
  Country: None (occurrence: None)
  Receive Date: 20120410
  Receipt Date: 20120403
  Transmission Date: 20120825
  Serious: Yes (Hospitalization)
  Sender: FDA-Public Use
  Company Number: 2012SP009832

PATIENT
  Age: 50 Year
  Sex: Male
  Weight: 80.7 kg

DRUGS (8)
  1. PROPRANOLOL HYDROCHLORIDE [Concomitant]
  2. LORAZEPAM [Concomitant]
  3. GLYBURIDE [Concomitant]
  4. BIPERIDEN HYDROCHLORIDE TAB [Concomitant]
  5. BROTIZOLAM [Concomitant]
  6. METFORMIN HCL [Concomitant]
  7. ASENAPINE (ASENAPINE / 05706901/) [Suspect]
     Indication: SCHIZOPHRENIA
     Dosage: 10 MG; BID; PO
     Route: 048
     Dates: start: 20111116
  8. ZOPICLONE [Concomitant]

REACTIONS (7)
  - SCHIZOPHRENIA [None]
  - HALLUCINATION, AUDITORY [None]
  - CONDITION AGGRAVATED [None]
  - ANXIETY [None]
  - PERSECUTORY DELUSION [None]
  - POOR QUALITY SLEEP [None]
  - RESTLESSNESS [None]
